FAERS Safety Report 9006069 (Version 2)
Quarter: 2013Q4

REPORT INFORMATION
  Report Type: Report from Study
  Country: FR (occurrence: FR)
  Receive Date: 20130109
  Receipt Date: 20131118
  Transmission Date: 20140711
  Serious: Yes (Disabling)
  Sender: FDA-Public Use
  Company Number: PHHY2013FR001540

PATIENT
  Age: 66 Year
  Sex: Female

DRUGS (6)
  1. ACLASTA/ZOLEDRONATE [Suspect]
     Indication: OSTEOPOROSIS
     Dosage: UNK UKN, UNK
     Route: 042
     Dates: start: 201111
  2. DAFALGAN [Concomitant]
     Dates: start: 2003
  3. NOROXINE [Concomitant]
     Dates: start: 20120822
  4. LYRICA [Concomitant]
     Dates: start: 20120301, end: 20120822
  5. UVEDOSE [Concomitant]
     Dates: start: 20120301, end: 20120822
  6. CALCIDOSE [Concomitant]
     Dates: start: 20120822, end: 20130102

REACTIONS (3)
  - Throat cancer [Unknown]
  - Rib fracture [Unknown]
  - Fall [Unknown]
